FAERS Safety Report 10048941 (Version 2)
Quarter: 2014Q1

REPORT INFORMATION
  Report Type: Spontaneous
  Country: AU (occurrence: AU)
  Receive Date: 20140331
  Receipt Date: 20140331
  Transmission Date: 20141002
  Serious: Yes (Other)
  Sender: FDA-Public Use
  Company Number: AU-ACTAVIS-2013-15583

PATIENT
  Age: 38 Year
  Sex: Female
  Weight: 52 kg

DRUGS (5)
  1. DOCETAXEL [Suspect]
     Indication: BREAST CANCER
     Dosage: 75 MG/M2, 3 WEEKLY
     Route: 042
     Dates: start: 20130822, end: 20130822
  2. EMEND                              /01627301/ [Concomitant]
     Indication: NAUSEA
     Dosage: 165 MG, UNK
     Route: 065
  3. ALOXI [Concomitant]
     Indication: NAUSEA
     Dosage: 250 MG, UNK
     Route: 065
  4. DEXAMETHASONE [Concomitant]
     Indication: NAUSEA
     Dosage: 8 MG, UNK
     Route: 065
  5. NEULASTA [Concomitant]
     Indication: COLONY STIMULATING FACTOR THERAPY
     Dosage: 6 MG, UNK
     Route: 065

REACTIONS (5)
  - Chest pain [Recovered/Resolved]
  - Dyspnoea [Recovered/Resolved]
  - Throat tightness [Recovered/Resolved]
  - Musculoskeletal pain [Recovered/Resolved]
  - Flushing [Recovered/Resolved]
